FAERS Safety Report 14103785 (Version 1)
Quarter: 2017Q4

REPORT INFORMATION
  Report Type: Spontaneous
  Country: US (occurrence: US)
  Receive Date: 20171018
  Receipt Date: 20171018
  Transmission Date: 20180321
  Serious: No
  Sender: FDA-Public Use
  Company Number: US-AMGEN-USASP2017091025

PATIENT
  Age: 63 Year
  Sex: Female

DRUGS (2)
  1. ESTRACE [Concomitant]
     Active Substance: ESTRADIOL
     Dosage: UNK
     Dates: start: 2015
  2. PROLIA [Suspect]
     Active Substance: DENOSUMAB
     Indication: OSTEOPOROSIS POSTMENOPAUSAL
     Dosage: UNK
     Route: 065
     Dates: start: 2012

REACTIONS (1)
  - Arthropathy [Not Recovered/Not Resolved]

NARRATIVE: CASE EVENT DATE: 201507
